FAERS Safety Report 7537745-0 (Version None)
Quarter: 2011Q2

REPORT INFORMATION
  Report Type: 
  Country: None (occurrence: None)
  Receive Date: 20110609
  Receipt Date: 20110606
  Transmission Date: 20111010
  Serious: Yes (Other)
  Sender: FDA-Public Use
  Company Number: BE-PFIZER INC-2011121907

PATIENT
  Age: 12 Year
  Sex: Female

DRUGS (1)
  1. SULFASALAZINE [Suspect]
     Indication: SPONDYLOARTHROPATHY
     Dosage: 500 MG, 2X/DAY
     Route: 048
     Dates: start: 20110301

REACTIONS (2)
  - VISUAL ACUITY REDUCED [None]
  - VENOUS THROMBOSIS [None]
